FAERS Safety Report 6002684-3 (Version None)
Quarter: 2008Q4

REPORT INFORMATION
  Report Type: 
  Country: None (occurrence: None)
  Receive Date: 20081215
  Receipt Date: 20071107
  Transmission Date: 20090506
  Serious: No
  Sender: FDA-Public Use
  Company Number: US-AMGEN-KDL251520

PATIENT
  Sex: Female

DRUGS (2)
  1. ENBREL [Suspect]
     Indication: RHEUMATOID ARTHRITIS
     Route: 058
     Dates: start: 20071003
  2. METHOTREXATE [Concomitant]
     Dates: start: 20040101

REACTIONS (7)
  - EAR CONGESTION [None]
  - EPISTAXIS [None]
  - GINGIVAL PAIN [None]
  - PAIN [None]
  - PAIN IN JAW [None]
  - SINUSITIS [None]
  - TOOTHACHE [None]
